FAERS Safety Report 9813705 (Version 5)
Quarter: 2014Q3

REPORT INFORMATION
  Report Type: Report from Study
  Country: US (occurrence: US)
  Receive Date: 20140113
  Receipt Date: 20140730
  Transmission Date: 20150326
  Serious: Yes (Death, Hospitalization)
  Sender: FDA-Public Use
  Company Number: US-BRISTOL-MYERS SQUIBB COMPANY-19963545

PATIENT
  Age: 55 Year
  Sex: Female
  Weight: 78.6 kg

DRUGS (19)
  1. NIVOLUMAB [Suspect]
     Active Substance: NIVOLUMAB
     Indication: MALIGNANT MELANOMA
     Dosage: INTERRUPTED ON :26NOV13.
     Route: 042
     Dates: start: 20131104
  2. ASPIRIN. [Concomitant]
     Active Substance: ASPIRIN
     Indication: PROPHYLAXIS
     Route: 048
     Dates: start: 2003
  3. HYDROMORPHONE [Concomitant]
     Active Substance: HYDROMORPHONE
  4. BENADRYL [Concomitant]
     Active Substance: DIPHENHYDRAMINE HYDROCHLORIDE
     Indication: RASH
     Route: 048
     Dates: start: 20131117
  5. CLARITIN [Concomitant]
     Active Substance: LORATADINE
     Indication: RASH
     Route: 048
     Dates: start: 20131118
  6. ALTEPLASE [Concomitant]
     Active Substance: ALTEPLASE
     Dosage: 1DF= 2MG CLOTTCATH AS DIRCPOE.
  7. COMPAZINE [Concomitant]
     Active Substance: PROCHLORPERAZINE MALEATE
     Route: 042
  8. ACETAMINOPHEN + HYDROCODONE [Concomitant]
     Active Substance: ACETAMINOPHEN\HYDROCODONE
     Indication: PAIN
     Dates: start: 2003
  9. SIMVASTATIN. [Concomitant]
     Active Substance: SIMVASTATIN
     Indication: HYPERLIPIDAEMIA
     Route: 048
     Dates: start: 2003
  10. LOSARTAN [Concomitant]
     Active Substance: LOSARTAN
     Indication: HYPERTENSION
     Dates: start: 2003
  11. SUMATRIPTAN [Concomitant]
     Active Substance: SUMATRIPTAN
     Indication: MIGRAINE
     Route: 048
     Dates: start: 2003
  12. ZOFRAN [Concomitant]
     Active Substance: ONDANSETRON HYDROCHLORIDE
     Route: 042
  13. IPILIMUMAB [Suspect]
     Active Substance: IPILIMUMAB
     Indication: MALIGNANT MELANOMA
     Dosage: INTERRUPTED ON :26NOV13.
     Route: 042
     Dates: start: 20131104
  14. HYDROCHLOROTHIAZIDE. [Concomitant]
     Active Substance: HYDROCHLOROTHIAZIDE
     Indication: HYPERTENSION
     Route: 048
     Dates: start: 2003
  15. ONDANSETRON [Concomitant]
     Active Substance: ONDANSETRON
     Indication: NAUSEA
     Route: 048
     Dates: start: 20131105
  16. FENTANYL TRANSDERMAL SYSTEM [Concomitant]
     Active Substance: FENTANYL
     Indication: PAIN
     Route: 062
     Dates: start: 20131104
  17. AMBIEN [Concomitant]
     Active Substance: ZOLPIDEM TARTRATE
     Dosage: ATBEDTIME
     Route: 048
  18. IMODIUM [Concomitant]
     Active Substance: LOPERAMIDE HYDROCHLORIDE
     Indication: DIARRHOEA
  19. NARCAN [Concomitant]
     Active Substance: NALOXONE HYDROCHLORIDE
     Route: 042

REACTIONS (12)
  - Generalised oedema [Not Recovered/Not Resolved]
  - Malnutrition [Not Recovered/Not Resolved]
  - Enterococcal sepsis [Fatal]
  - Pulmonary embolism [Not Recovered/Not Resolved]
  - Pleural effusion [Not Recovered/Not Resolved]
  - Multi-organ failure [Fatal]
  - Enterocolitis [Not Recovered/Not Resolved]
  - Pulmonary oedema [Recovered/Resolved]
  - Ascites [Not Recovered/Not Resolved]
  - Pancreatitis [Not Recovered/Not Resolved]
  - Oedema peripheral [Not Recovered/Not Resolved]
  - Atrial fibrillation [Not Recovered/Not Resolved]

NARRATIVE: CASE EVENT DATE: 20131227
